FAERS Safety Report 9628586 (Version 1)
Quarter: 2013Q4

REPORT INFORMATION
  Report Type: Spontaneous
  Country: PR (occurrence: PR)
  Receive Date: 20131017
  Receipt Date: 20131017
  Transmission Date: 20140711
  Serious: Yes (Hospitalization, Other)
  Sender: FDA-Public Use
  Company Number: PR-JNJFOC-20131004617

PATIENT
  Sex: Female

DRUGS (1)
  1. XARELTO [Suspect]
     Indication: PULMONARY EMBOLISM
     Route: 048
     Dates: start: 20130915, end: 201309

REACTIONS (4)
  - Hospitalisation [Unknown]
  - Hallucination, visual [Unknown]
  - Thinking abnormal [Unknown]
  - Incorrect dose administered [Unknown]
